FAERS Safety Report 8762654 (Version 2)
Quarter: 2012Q4

REPORT INFORMATION
  Report Type: 
  Country: US (occurrence: US)
  Receive Date: 20120830
  Receipt Date: 20121012
  Transmission Date: 20130627
  Serious: No
  Sender: FDA-Public Use
  Company Number: US-PFIZER INC-2012212113

PATIENT
  Sex: Female

DRUGS (1)
  1. LYRICA [Suspect]
     Indication: FIBROMYALGIA
     Dosage: UNK
     Dates: end: 20120825

REACTIONS (8)
  - Withdrawal syndrome [Unknown]
  - Diarrhoea [Unknown]
  - Pruritus generalised [Unknown]
  - Cold sweat [Unknown]
  - Rhinorrhoea [Unknown]
  - Decreased appetite [Unknown]
  - Rash [Unknown]
  - Pain [Unknown]
